FAERS Safety Report 20827018 (Version 2)
Quarter: 2022Q3

REPORT INFORMATION
  Report Type: Spontaneous
  Country: US (occurrence: US)
  Receive Date: 20220513
  Receipt Date: 20220804
  Transmission Date: 20221026
  Serious: No
  Sender: FDA-Public Use
  Company Number: US-BIOGEN-2022BI01122854

PATIENT
  Sex: Female

DRUGS (10)
  1. VUMERITY [Suspect]
     Active Substance: DIROXIMEL FUMARATE
     Indication: Multiple sclerosis
     Route: 050
     Dates: start: 20210225
  2. VUMERITY [Suspect]
     Active Substance: DIROXIMEL FUMARATE
     Route: 050
  3. METOPROLOL TARTRATE [Concomitant]
     Active Substance: METOPROLOL TARTRATE
     Route: 050
  4. FUROSEMIDE [Concomitant]
     Active Substance: FUROSEMIDE
     Route: 050
  5. CEFDINIR [Concomitant]
     Active Substance: CEFDINIR
     Route: 050
  6. TRIAMCINOLONE [Concomitant]
     Active Substance: TRIAMCINOLONE
     Route: 050
  7. CEFUROXIME [Concomitant]
     Active Substance: CEFUROXIME
     Route: 050
  8. CEFUROXIME AXETIL [Concomitant]
     Active Substance: CEFUROXIME AXETIL
     Route: 050
  9. AMANTADINE HYDROCHLORIDE [Concomitant]
     Active Substance: AMANTADINE HYDROCHLORIDE
     Route: 050
  10. MYRBETRIQ [Concomitant]
     Active Substance: MIRABEGRON
     Route: 050

REACTIONS (4)
  - Drug ineffective [Unknown]
  - Infection [Not Recovered/Not Resolved]
  - Lymphocyte count decreased [Not Recovered/Not Resolved]
  - Diarrhoea [Unknown]
